FAERS Safety Report 4914161-9 (Version None)
Quarter: 2006Q1

REPORT INFORMATION
  Report Type: 
  Country: None (occurrence: None)
  Receive Date: 20060216
  Receipt Date: 20060208
  Transmission Date: 20060701
  Serious: Yes (Life-Threatening)
  Sender: FDA-Public Use
  Company Number: FR-BRISTOL-MYERS SQUIBB COMPANY-13284864

PATIENT
  Age: 59 Year
  Sex: Male
  Weight: 63 kg

DRUGS (8)
  1. ENDOXAN [Suspect]
     Indication: NON-HODGKIN'S LYMPHOMA
     Route: 042
     Dates: start: 19980801, end: 19980801
  2. ADRIBLASTINE [Suspect]
     Indication: NON-HODGKIN'S LYMPHOMA
     Route: 042
     Dates: start: 19980515, end: 19980715
  3. ETOPOSIDE [Suspect]
     Indication: NON-HODGKIN'S LYMPHOMA
     Route: 042
     Dates: start: 19980815, end: 19980815
  4. NOVANTRONE [Suspect]
     Indication: NON-HODGKIN'S LYMPHOMA
     Route: 042
     Dates: start: 20001016, end: 20010314
  5. FLUDARABINE PHOSPHATE [Suspect]
     Indication: NON-HODGKIN'S LYMPHOMA
     Route: 042
     Dates: start: 20001016, end: 20010314
  6. MABTHERA [Suspect]
     Indication: NON-HODGKIN'S LYMPHOMA
     Route: 042
     Dates: start: 20001016, end: 20001201
  7. ONCOVIN [Concomitant]
     Dates: start: 19980501
  8. CORTANCYL [Concomitant]
     Dates: start: 19980501

REACTIONS (2)
  - GASTRIC CANCER [None]
  - TREATMENT RELATED SECONDARY MALIGNANCY [None]
